FAERS Safety Report 14768326 (Version 1)
Quarter: 2018Q2

REPORT INFORMATION
  Report Type: Spontaneous
  Country: US (occurrence: US)
  Receive Date: 20180410
  Receipt Date: 20180410
  Transmission Date: 20180711
  Serious: No
  Sender: FDA-Public Use
  Company Number: None

PATIENT
  Age: 49 Year
  Sex: Female

DRUGS (1)
  1. COPAXONE [Suspect]
     Active Substance: GLATIRAMER ACETATE
     Dosage: 40MG 3X A WEEK SQ
     Route: 058

REACTIONS (2)
  - Neuralgia [None]
  - Head discomfort [None]

NARRATIVE: CASE EVENT DATE: 20180410
